FAERS Safety Report 8068369-7 (Version None)
Quarter: 2012Q1

REPORT INFORMATION
  Report Type: 
  Country: None (occurrence: None)
  Receive Date: 20120124
  Receipt Date: 20111020
  Transmission Date: 20120608
  Serious: No
  Sender: FDA-Public Use
  Company Number: US-AMGEN-USASP2011054366

PATIENT
  Age: 75 Year
  Sex: Female

DRUGS (5)
  1. PROLIA [Suspect]
     Indication: OSTEOPOROSIS POSTMENOPAUSAL
     Dosage: 60 MG, Q6MO
     Dates: start: 20100801
  2. DIGOXIN [Concomitant]
     Dosage: 2 MG, QD
  3. WARFARIN SODIUM [Concomitant]
     Dosage: 1 MG, QD
  4. SOTALOL HCL [Concomitant]
     Dosage: 1 MG, QD
  5. SYNTHROID [Concomitant]
     Dosage: 1 MG, QD

REACTIONS (2)
  - VITAMIN D DECREASED [None]
  - CYSTITIS [None]
